FAERS Safety Report 4364316-X (Version None)
Quarter: 2004Q2

REPORT INFORMATION
  Report Type: 
  Country: None (occurrence: None)
  Receive Date: 20040525
  Receipt Date: 20030506
  Transmission Date: 20050107
  Serious: Yes (Hospitalization)
  Sender: FDA-Public Use
  Company Number: US-BRISTOL-MYERS SQUIBB COMPANY-12264990

PATIENT
  Age: 48 Year
  Sex: Female

DRUGS (2)
  1. CYTOXAN [Suspect]
     Dates: start: 20021101
  2. TRACLEER [Suspect]
     Indication: PULMONARY HYPERTENSION
     Dosage: INITIATED 62.5 MG BID, THE INCREASED TO 125 MG BID (UNKNOWN DATES)
     Route: 048

REACTIONS (1)
  - NEUTROPENIA [None]
